FAERS Safety Report 13609740 (Version 1)
Quarter: 2017Q2

REPORT INFORMATION
  Report Type: Spontaneous
  Country: US (occurrence: US)
  Receive Date: 20170602
  Receipt Date: 20170602
  Transmission Date: 20170830
  Serious: No
  Sender: FDA-Public Use
  Company Number: US-PFIZER INC-3225273

PATIENT
  Sex: Female

DRUGS (1)
  1. MAGNESIUM SULFATE. [Suspect]
     Active Substance: MAGNESIUM SULFATE
     Indication: PRODUCT USED FOR UNKNOWN INDICATION
     Dosage: UNK

REACTIONS (5)
  - Dizziness [Unknown]
  - Dehydration [Unknown]
  - Muscle fatigue [Unknown]
  - Muscular weakness [Unknown]
  - Product use issue [Unknown]

NARRATIVE: CASE EVENT DATE: 20160201
